FAERS Safety Report 5908797-6 (Version None)
Quarter: 2008Q4

REPORT INFORMATION
  Report Type: 
  Country: None (occurrence: None)
  Receive Date: 20081006
  Receipt Date: 20080926
  Transmission Date: 20090506
  Serious: Yes (Other)
  Sender: FDA-Public Use
  Company Number: FR-BAXTER-2008BH010212

PATIENT
  Age: 13 Year
  Sex: Female

DRUGS (9)
  1. SEVOFLURANE [Suspect]
     Indication: ANAESTHESIA
     Dosage: DOSE UNIT:UNKNOWN
     Route: 055
     Dates: start: 20080924, end: 20080924
  2. SEVOFLURANE [Suspect]
     Indication: SCOLIOSIS SURGERY
     Dosage: DOSE UNIT:UNKNOWN
     Route: 055
     Dates: start: 20080924, end: 20080924
  3. ATRACURIUM BESYLATE [Suspect]
     Indication: ANAESTHESIA
     Dosage: DOSE UNIT:UNKNOWN
     Route: 065
     Dates: start: 20080924, end: 20080924
  4. ATRACURIUM BESYLATE [Suspect]
     Indication: SCOLIOSIS SURGERY
     Dosage: DOSE UNIT:UNKNOWN
     Route: 065
     Dates: start: 20080924, end: 20080924
  5. MIDAZOLAM HCL [Suspect]
     Indication: ANAESTHESIA
     Dosage: DOSE UNIT:UNKNOWN
     Route: 065
     Dates: start: 20080924, end: 20080924
  6. MIDAZOLAM HCL [Suspect]
     Dosage: DOSE UNIT:UNKNOWN
     Route: 065
     Dates: start: 20080924, end: 20080924
  7. SUFENTANIL CITRATE [Suspect]
     Indication: ANAESTHESIA
     Dosage: DOSE UNIT:UNKNOWN
     Route: 065
     Dates: start: 20080924, end: 20080924
  8. SUFENTANIL CITRATE [Suspect]
     Indication: SCOLIOSIS SURGERY
     Dosage: DOSE UNIT:UNKNOWN
     Route: 065
     Dates: start: 20080924, end: 20080924
  9. DROLEPTAN [Suspect]
     Indication: DRUG USE FOR UNKNOWN INDICATION
     Route: 042
     Dates: start: 20080924, end: 20080924

REACTIONS (3)
  - CYTOLYTIC HEPATITIS [None]
  - HYPOTENSION [None]
  - OVERDOSE [None]
